FAERS Safety Report 17602481 (Version 1)
Quarter: 2020Q1

REPORT INFORMATION
  Report Type: Spontaneous
  Country: US (occurrence: US)
  Receive Date: 20200330
  Receipt Date: 20200330
  Transmission Date: 20200409
  Serious: No
  Sender: FDA-Public Use
  Company Number: US-SEPTODONT-201905655

PATIENT
  Age: 59 Year
  Sex: Female
  Weight: 81 kg

DRUGS (2)
  1. TOPICAL BENZOCAINE 20% [Concomitant]
     Indication: DENTAL LOCAL ANAESTHESIA
     Route: 061
     Dates: start: 20191106, end: 20191106
  2. LIDOCAINE HYDROCHLORIDE AND EPINEPHRINE BITARTRATE [Suspect]
     Active Substance: EPINEPHRINE BITARTRATE\LIDOCAINE HYDROCHLORIDE
     Indication: NERVE BLOCK
     Route: 004
     Dates: start: 20191106, end: 20191106

REACTIONS (5)
  - Injection site pain [Recovered/Resolved]
  - Pain [Recovered/Resolved]
  - Tenderness [Recovered/Resolved]
  - Pain in jaw [Recovered/Resolved]
  - Muscle spasms [Recovered/Resolved]

NARRATIVE: CASE EVENT DATE: 20191106
